FAERS Safety Report 4901828-1 (Version None)
Quarter: 2006Q1

REPORT INFORMATION
  Report Type: 
  Country: None (occurrence: None)
  Receive Date: 20060202
  Receipt Date: 20060202
  Transmission Date: 20060701
  Serious: Yes (Hospitalization)
  Sender: FDA-Public Use
  Company Number: None

PATIENT
  Age: 67 Year
  Sex: Female
  Weight: 127.0072 kg

DRUGS (8)
  1. ZYVOX [Suspect]
     Indication: POSTOPERATIVE WOUND INFECTION
     Dosage: 600 MG Q120 IV
     Route: 042
     Dates: start: 20051229, end: 20060129
  2. LOTREL [Concomitant]
  3. TOPROL-XL [Concomitant]
  4. BENZECOR [Concomitant]
  5. HYDROCHLOROTHIAZIDE [Concomitant]
  6. PRILOSEC [Concomitant]
  7. ADVIL [Concomitant]
  8. PERCOCET [Concomitant]

REACTIONS (1)
  - ANAEMIA [None]
